FAERS Safety Report 7906688-2 (Version None)
Quarter: 2011Q4

REPORT INFORMATION
  Report Type: 
  Country: None (occurrence: None)
  Receive Date: 20111110
  Receipt Date: 20111107
  Transmission Date: 20120403
  Serious: Yes (Hospitalization, Other)
  Sender: FDA-Public Use
  Company Number: GR-JNJFOC-20111101843

PATIENT
  Sex: Male
  Weight: 97 kg

DRUGS (8)
  1. DOXORUBICIN HCL [Suspect]
     Route: 042
     Dates: start: 20110726
  2. VELCADE [Suspect]
     Route: 042
     Dates: start: 20110101
  3. VELCADE [Suspect]
     Route: 042
     Dates: start: 20110101
  4. VELCADE [Suspect]
     Route: 042
     Dates: start: 20110506
  5. DOXORUBICIN HCL [Suspect]
     Indication: MULTIPLE MYELOMA
     Route: 042
     Dates: start: 20110506
  6. VELCADE [Suspect]
     Route: 042
     Dates: start: 20110101
  7. DEXAMETHASONE [Concomitant]
     Indication: MULTIPLE MYELOMA
     Route: 048
     Dates: start: 20110804
  8. VELCADE [Suspect]
     Indication: MULTIPLE MYELOMA
     Route: 042
     Dates: start: 20110726

REACTIONS (2)
  - UPPER RESPIRATORY TRACT INFECTION [None]
  - LOWER RESPIRATORY TRACT INFECTION [None]
